FAERS Safety Report 10920622 (Version 1)
Quarter: 2015Q1

REPORT INFORMATION
  Report Type: Spontaneous
  Country: US (occurrence: None)
  Receive Date: 20150313
  Receipt Date: 20150313
  Transmission Date: 20150721
  Serious: Yes (Other)
  Sender: FDA-Public Use
  Company Number: None

PATIENT
  Age: 70 Year
  Sex: Male
  Weight: 96.62 kg

DRUGS (5)
  1. GNC MEGA MEN 50 PLUS [Concomitant]
  2. GNC ZINC [Concomitant]
  3. EYE PROMISE RESTORE SOFTGEL [Concomitant]
  4. WELCHOL [Suspect]
     Active Substance: COLESEVELAM HYDROCHLORIDE
     Indication: LOW DENSITY LIPOPROTEIN INCREASED
     Dates: start: 20150224, end: 20150311
  5. WELCHOL [Suspect]
     Active Substance: COLESEVELAM HYDROCHLORIDE
     Indication: HEPATIC STEATOSIS
     Dates: start: 20150224, end: 20150311

REACTIONS (1)
  - Constipation [None]

NARRATIVE: CASE EVENT DATE: 20150224
